FAERS Safety Report 4366004-2 (Version None)
Quarter: 2004Q2

REPORT INFORMATION
  Report Type: 
  Country: None (occurrence: None)
  Receive Date: 20040524
  Receipt Date: 20040507
  Transmission Date: 20050107
  Serious: Yes (Hospitalization)
  Sender: FDA-Public Use
  Company Number: 7980

PATIENT
  Age: 75 Year
  Sex: Male

DRUGS (2)
  1. LEUCOVORIN [Suspect]
     Indication: RECTAL CANCER
     Dosage: 20 MG/M2 DAILY IV
     Route: 042
  2. FLUOROURACIL [Suspect]
     Indication: RECTAL CANCER
     Dosage: 175 MG /M2 DAILY IV
     Route: 042

REACTIONS (2)
  - DEHYDRATION [None]
  - DIARRHOEA [None]
